FAERS Safety Report 9778429 (Version 1)
Quarter: 2013Q4

REPORT INFORMATION
  Report Type: Spontaneous
  Country: US (occurrence: None)
  Receive Date: 20131220
  Receipt Date: 20131220
  Transmission Date: 20140711
  Serious: Yes (Other)
  Sender: FDA-Public Use
  Company Number: None

PATIENT
  Sex: Female
  Weight: 50.5 kg

DRUGS (2)
  1. ZONEGRAN [Suspect]
     Indication: EPILEPSY
     Dosage: 2 QAM 3 QPM PO
     Route: 048
     Dates: start: 2009
  2. ZONEGRAN [Suspect]
     Indication: CEREBRAL PALSY
     Dosage: 2 QAM 3 QPM PO
     Route: 048
     Dates: start: 2009

REACTIONS (2)
  - Treatment failure [None]
  - Product substitution issue [None]
